FAERS Safety Report 7585887-6 (Version None)
Quarter: 2011Q2

REPORT INFORMATION
  Report Type: 
  Country: None (occurrence: None)
  Receive Date: 20110603
  Receipt Date: 20110324
  Transmission Date: 20111010
  Serious: No
  Sender: FDA-Public Use
  Company Number: 201101001

PATIENT
  Age: 70 Year
  Sex: Male

DRUGS (6)
  1. NIACIN [Concomitant]
  2. XIAFLEX [Suspect]
     Indication: DUPUYTREN'S CONTRACTURE
     Dosage: 0.58 MG, 1 IN 1 D, INTRALESIONAL
     Route: 026
     Dates: start: 20101208, end: 20101208
  3. CENTRUM (VITAMINS NOS) [Concomitant]
  4. FISH OIL (FISH OIL) [Concomitant]
  5. AVALIDE (HYDROCHLOROTHIAZIDE) [Concomitant]
  6. ASPIRIN [Concomitant]

REACTIONS (4)
  - INJECTION SITE HAEMATOMA [None]
  - LACERATION [None]
  - PAIN [None]
  - INJECTION SITE SWELLING [None]
